FAERS Safety Report 5894184-6 (Version None)
Quarter: 2008Q3

REPORT INFORMATION
  Report Type: 
  Country: None (occurrence: None)
  Receive Date: 20080923
  Receipt Date: 20080908
  Transmission Date: 20090109
  Serious: Yes (Death, Other)
  Sender: FDA-Public Use
  Company Number: US-GENENTECH-267658

PATIENT
  Age: 55 Year
  Sex: Male

DRUGS (7)
  1. RITUXAN [Suspect]
     Indication: MYOSITIS
     Dosage: 375 MG/M2, 1/WEEK
     Route: 042
  2. MYCOPHENOLATE MOFETIL [Suspect]
     Indication: RASH
     Dosage: UNK
     Dates: start: 20030101
  3. MYCOPHENOLATE MOFETIL [Suspect]
     Dosage: 1000 MG, BID
     Dates: start: 20060101
  4. PREDNISONE [Suspect]
     Indication: DERMATOMYOSITIS
     Dosage: 1 MG/KG, UNK
     Dates: start: 19980101
  5. PREDNISONE [Suspect]
     Dosage: 7.5 MG, QD
     Dates: start: 20060101
  6. PREDNISONE [Suspect]
     Dosage: 20 MG, QD
  7. HYDROXYCHLOROQUINE [Concomitant]
     Indication: DRUG USE FOR UNKNOWN INDICATION
     Dosage: UNK
     Dates: start: 20030101

REACTIONS (1)
  - MYCOBACTERIAL INFECTION [None]
